FAERS Safety Report 18675855 (Version 1)
Quarter: 2020Q4

REPORT INFORMATION
  Report Type: Spontaneous
  Country: US (occurrence: US)
  Receive Date: 20201228
  Receipt Date: 20201228
  Transmission Date: 20210114
  Serious: No
  Sender: FDA-Public Use
  Company Number: None

PATIENT
  Age: 37 Year
  Sex: Female

DRUGS (8)
  1. NORETHINDRONE. [Concomitant]
     Active Substance: NORETHINDRONE
  2. ZYRTEC [Concomitant]
     Active Substance: CETIRIZINE HYDROCHLORIDE
  3. GLYCOPYRROLATE. [Concomitant]
     Active Substance: GLYCOPYRROLATE
  4. PRENATABS FA [Concomitant]
     Active Substance: .BETA.-CAROTENE\ASCORBIC ACID\CALCIUM CARBONATE\CHOLECALCIFEROL\CYANOCOBALAMIN\FERROUS FUMARATE\FOLIC ACID\NIACINAMIDE\POTASSIUM IODIDE\PYRIDOXINE HYDROCHLORIDE\RIBOFLAVIN\THIAMINE MONONITRATE\ZINC
  5. SYMBICORT [Concomitant]
     Active Substance: BUDESONIDE\FORMOTEROL FUMARATE DIHYDRATE
  6. CITALOPRAM HYDROBROMIDE. [Concomitant]
     Active Substance: CITALOPRAM HYDROBROMIDE
  7. XOLAIR [Suspect]
     Active Substance: OMALIZUMAB
     Indication: ASTHMA
     Route: 058
     Dates: start: 201812
  8. AZELASTINE HCL [Concomitant]
     Active Substance: AZELASTINE HYDROCHLORIDE

REACTIONS (1)
  - Twin pregnancy [None]
